FAERS Safety Report 6287631-1 (Version None)
Quarter: 2009Q3

REPORT INFORMATION
  Report Type: 
  Country: None (occurrence: None)
  Receive Date: 20090727
  Receipt Date: 20090727
  Transmission Date: 20100115
  Serious: Yes (Hospitalization)
  Sender: FDA-Public Use
  Company Number: None

PATIENT
  Sex: Female
  Weight: 60 kg

DRUGS (3)
  1. CISPLATIN [Suspect]
     Dosage: 406 MG
  2. DOXORUBICIN HCL [Suspect]
     Dosage: 255 MG
  3. METHOTREXATE [Suspect]
     Dosage: 39.8 G

REACTIONS (3)
  - CHEST PAIN [None]
  - NEUTROPENIA [None]
  - SEPSIS [None]
